FAERS Safety Report 14950903 (Version 2)
Quarter: 2018Q2

REPORT INFORMATION
  Report Type: Report from Study
  Country: DE (occurrence: DE)
  Receive Date: 20180530
  Receipt Date: 20180621
  Transmission Date: 20180711
  Serious: Yes (Death, Other)
  Sender: FDA-Public Use
  Company Number: DE-ROCHE-2053569

PATIENT
  Age: 79 Year
  Sex: Male
  Weight: 90 kg

DRUGS (5)
  1. IRINOTECAN [Concomitant]
     Active Substance: IRINOTECAN
     Indication: COLORECTAL CANCER
     Route: 041
     Dates: start: 20130423, end: 20130423
  2. 5-FLUOROURACIL [Concomitant]
     Active Substance: FLUOROURACIL
     Route: 041
     Dates: start: 20130723, end: 20130724
  3. BEVACIZUMAB. [Suspect]
     Active Substance: BEVACIZUMAB
     Indication: COLORECTAL CANCER METASTATIC
     Route: 042
     Dates: start: 20130423, end: 20130723
  4. 5-FLUOROURACIL [Concomitant]
     Active Substance: FLUOROURACIL
     Indication: COLORECTAL CANCER
     Route: 041
     Dates: start: 20130423, end: 20130423
  5. IRINOTECAN [Concomitant]
     Active Substance: IRINOTECAN
     Route: 041
     Dates: start: 20130723, end: 20130724

REACTIONS (3)
  - Ileus paralytic [Recovered/Resolved]
  - Death [Fatal]
  - Ascites [Recovered/Resolved]

NARRATIVE: CASE EVENT DATE: 20130728
